FAERS Safety Report 15526312 (Version 4)
Quarter: 2021Q1

REPORT INFORMATION
  Report Type: Spontaneous
  Country: FR (occurrence: FR)
  Receive Date: 20181018
  Receipt Date: 20210126
  Transmission Date: 20210419
  Serious: Yes (Death, Life-Threatening, Other)
  Sender: FDA-Public Use
  Company Number: FR-PFIZER INC-2018419111

PATIENT
  Age: 66 Year
  Sex: Female

DRUGS (2)
  1. CARBOPLATIN. [Suspect]
     Active Substance: CARBOPLATIN
     Indication: OVARIAN CANCER
     Dosage: UNK UNK, 6 CYCLIC (ON DAYS 1 AND 8, FOR 6 CYCLES)
     Dates: start: 201508, end: 201512
  2. GEMCITABINE HYDROCHLORIDE. [Suspect]
     Active Substance: GEMCITABINE HYDROCHLORIDE
     Indication: OVARIAN CANCER
     Dosage: UNK UNK, 6 CYCLIC (ON DAYS 1 AND 8, FOR 6 CYCLES)
     Dates: start: 201508, end: 201512

REACTIONS (6)
  - Escherichia infection [Recovered/Resolved]
  - Anaemia [Unknown]
  - Hypersensitivity [Recovered/Resolved]
  - Neuropathy peripheral [Unknown]
  - Hepatotoxicity [Recovered/Resolved]
  - Neutropenia [Recovered/Resolved]

NARRATIVE: CASE EVENT DATE: 2015
